FAERS Safety Report 8464068-8 (Version None)
Quarter: 2012Q2

REPORT INFORMATION
  Report Type: 
  Country: None (occurrence: None)
  Receive Date: 20120323
  Receipt Date: 20111123
  Transmission Date: 20120825
  Serious: Yes (Hospitalization)
  Sender: FDA-Public Use
  Company Number: 163-21880-11101078

PATIENT
  Age: 73 Year
  Sex: Male

DRUGS (9)
  1. ZOFRAN (ONDANSETRO HYDROCHLORIDE) [Concomitant]
  2. NOVOLOG [Concomitant]
  3. ACYCLOVIR [Concomitant]
  4. LENALIDOMIDE [Suspect]
     Indication: MULTIPLE MYELOMA
     Dosage: 10 MG, DAILY X 21 DAYS, PO
     Route: 048
     Dates: start: 20110818
  5. LEVEMIR [Concomitant]
  6. MS CONTIN [Concomitant]
  7. PROTONIX [Concomitant]
  8. DEXAMETHASONE [Concomitant]
  9. DILAUDID (HYDROCMORPHONE HYDROCHLORIDE) [Concomitant]

REACTIONS (3)
  - PNEUMONIA [None]
  - PLATELET COUNT DECREASED [None]
  - RENAL FAILURE ACUTE [None]
